FAERS Safety Report 16771807 (Version 1)
Quarter: 2019Q3

REPORT INFORMATION
  Report Type: Spontaneous
  Country: JP (occurrence: JP)
  Receive Date: 20190904
  Receipt Date: 20190904
  Transmission Date: 20191005
  Serious: Yes (Other)
  Sender: FDA-Public Use
  Company Number: JP-PFIZER INC-2019370276

PATIENT
  Age: 75 Year
  Sex: Male

DRUGS (8)
  1. MECOBALAMIN [Suspect]
     Active Substance: METHYLCOBALAMIN
     Dosage: 500 UG, 3X/DAY
  2. LIMAPROST [Suspect]
     Active Substance: LIMAPROST
     Dosage: 5 MG, 3X/DAY
  3. ZACRAS COMBINATION TABLETS LD [Suspect]
     Active Substance: AMLODIPINE BESYLATE\AZILSARTAN
     Dosage: UNK
  4. NEUROTROPIN [RABBIT VACCINIA EXTRACT] [Suspect]
     Active Substance: ORYCTOLAGUS CUNICULUS SKIN
     Dosage: 4 IU, 4X/DAY
  5. JANUVIA [Suspect]
     Active Substance: SITAGLIPTIN PHOSPHATE
     Dosage: 50 MG, DAILY
  6. TRAMAL OD TABLETS 25MG [Suspect]
     Active Substance: TRAMADOL HYDROCHLORIDE
     Indication: PAIN
     Dosage: 100 MG, DAILY
     Route: 048
  7. LYRICA [Suspect]
     Active Substance: PREGABALIN
     Indication: PAIN
     Dosage: 150 MG, DAILY
     Route: 048
  8. METGLUCO [Suspect]
     Active Substance: METFORMIN HYDROCHLORIDE
     Dosage: 250 MG, 2X/DAY

REACTIONS (5)
  - Drug ineffective [Unknown]
  - Metastases to adrenals [Unknown]
  - Bone neoplasm [Unknown]
  - Renal neoplasm [Unknown]
  - Metastases to bone [Unknown]
